FAERS Safety Report 6393897-X (Version None)
Quarter: 2009Q4

REPORT INFORMATION
  Report Type: 
  Country: None (occurrence: None)
  Receive Date: 20091008
  Receipt Date: 20090929
  Transmission Date: 20100525
  Serious: Yes (Other)
  Sender: FDA-Public Use
  Company Number: GB-JNJFOC-20091000203

PATIENT
  Sex: Female
  Weight: 61.8 kg

DRUGS (5)
  1. REMICADE [Suspect]
     Indication: COLITIS ULCERATIVE
     Route: 042
  2. REMICADE [Suspect]
     Indication: INFLAMMATORY BOWEL DISEASE
     Route: 042
  3. LANSOPRAZOLE [Concomitant]
  4. METRONIDAZOLE [Concomitant]
  5. RANITIDINE [Concomitant]

REACTIONS (3)
  - FEELING HOT [None]
  - HYPOAESTHESIA [None]
  - PARAESTHESIA ORAL [None]
